FAERS Safety Report 12851857 (Version 1)
Quarter: 2016Q4

REPORT INFORMATION
  Report Type: Spontaneous
  Country: FR (occurrence: FR)
  Receive Date: 20161017
  Receipt Date: 20161017
  Transmission Date: 20170207
  Serious: Yes (Hospitalization)
  Sender: FDA-Public Use
  Company Number: FR-ROCHE-1841950

PATIENT
  Age: 73 Year
  Sex: Male

DRUGS (6)
  1. MABTHERA [Suspect]
     Active Substance: RITUXIMAB
     Indication: CHRONIC LYMPHOCYTIC LEUKAEMIA
     Dosage: 2ND CYCLE
     Route: 041
     Dates: start: 20160601, end: 20160601
  2. FLUDARA [Suspect]
     Active Substance: FLUDARABINE PHOSPHATE
     Dosage: DAY 2 TO DAY 4
     Route: 048
     Dates: start: 20160406
  3. ENDOXAN [Suspect]
     Active Substance: CYCLOPHOSPHAMIDE
     Indication: CHRONIC LYMPHOCYTIC LEUKAEMIA
     Route: 048
     Dates: start: 20160602, end: 20160605
  4. FLUDARA [Suspect]
     Active Substance: FLUDARABINE PHOSPHATE
     Indication: CHRONIC LYMPHOCYTIC LEUKAEMIA
     Route: 048
     Dates: start: 20160602, end: 20160605
  5. MABTHERA [Suspect]
     Active Substance: RITUXIMAB
     Dosage: ON DAY 1
     Route: 041
     Dates: start: 20160406
  6. ENDOXAN [Suspect]
     Active Substance: CYCLOPHOSPHAMIDE
     Dosage: FROM DAY 2 TO DAY 4
     Route: 048

REACTIONS (1)
  - Febrile bone marrow aplasia [Recovered/Resolved]

NARRATIVE: CASE EVENT DATE: 20160626
